FAERS Safety Report 7746925-0 (Version None)
Quarter: 2011Q3

REPORT INFORMATION
  Report Type: 
  Country: None (occurrence: None)
  Receive Date: 20110913
  Receipt Date: 20110830
  Transmission Date: 20111222
  Serious: Yes (Hospitalization, Other)
  Sender: FDA-Public Use
  Company Number: PHEH2011US02661

PATIENT
  Sex: Male

DRUGS (2)
  1. EXELON [Suspect]
     Dosage: 6 OF THE 9.5 MG PATCHES ON AT THE SAME TIME
     Route: 062
  2. EXELON [Suspect]
     Dosage: 4.6 MG, UNK
     Route: 062

REACTIONS (6)
  - URINARY TRACT INFECTION [None]
  - NAUSEA [None]
  - MALAISE [None]
  - VOMITING [None]
  - WRONG TECHNIQUE IN DRUG USAGE PROCESS [None]
  - OVERDOSE [None]
